FAERS Safety Report 15590106 (Version 2)
Quarter: 2018Q4

REPORT INFORMATION
  Report Type: Spontaneous
  Country: US (occurrence: US)
  Receive Date: 20181106
  Receipt Date: 20181122
  Transmission Date: 20190205
  Serious: No
  Sender: FDA-Public Use
  Company Number: PHEH2018US046004

PATIENT
  Sex: Male
  Weight: 32 kg

DRUGS (1)
  1. KYMRIAH [Suspect]
     Active Substance: TISAGENLECLEUCEL
     Indication: PRODUCT USED FOR UNKNOWN INDICATION
     Dosage: 37 ML, ONE SINGLE DOSE
     Route: 042
     Dates: start: 20180917

REACTIONS (1)
  - Drug ineffective [Not Recovered/Not Resolved]
